FAERS Safety Report 19792902 (Version 2)
Quarter: 2021Q3

REPORT INFORMATION
  Report Type: Report from Study
  Country: CH (occurrence: CH)
  Receive Date: 20210906
  Receipt Date: 20210909
  Transmission Date: 20211014
  Serious: Yes (Hospitalization)
  Sender: FDA-Public Use
  Company Number: CH-ROCHE-2899379

PATIENT
  Age: 61 Year

DRUGS (2)
  1. BLINDED IBRUTINIB/PLACEBO [Suspect]
     Active Substance: IBRUTINIB
     Indication: FOLLICULAR LYMPHOMA
     Dosage: ON 21/AUG/2021, THE PATIENT RECEIVED BLINDED IBRUTINIB MOST RECENT DOSE PRIOR TO SERIOUS ADVERSE EVE
     Route: 048
     Dates: start: 20200212, end: 20210821
  2. RITUXIMAB. [Suspect]
     Active Substance: RITUXIMAB
     Indication: FOLLICULAR LYMPHOMA
     Dosage: ON 17/AUG/2021, SHE RECEIVED MOST RECENT DOSE PRIOR TO SAE
     Route: 058
     Dates: start: 20200226

REACTIONS (1)
  - Hyperthyroidism [Recovered/Resolved]

NARRATIVE: CASE EVENT DATE: 20210823
